FAERS Safety Report 19275872 (Version 1)
Quarter: 2021Q2

REPORT INFORMATION
  Report Type: Spontaneous
  Country: US (occurrence: US)
  Receive Date: 20210519
  Receipt Date: 20210519
  Transmission Date: 20210717
  Serious: No
  Sender: FDA-Public Use
  Company Number: US-CIPLA LTD.-2021US02070

PATIENT

DRUGS (2)
  1. DICLOFENAC [Suspect]
     Active Substance: DICLOFENAC
     Indication: PAIN IN EXTREMITY
     Dosage: UNK
     Route: 061
  2. DICLOFENAC [Suspect]
     Active Substance: DICLOFENAC
     Indication: BACK PAIN

REACTIONS (2)
  - Product use in unapproved indication [Unknown]
  - Off label use [Unknown]
